FAERS Safety Report 11316863 (Version 2)
Quarter: 2015Q3

REPORT INFORMATION
  Report Type: Report from Study
  Country: US (occurrence: US)
  Receive Date: 20150728
  Receipt Date: 20150929
  Transmission Date: 20151125
  Serious: Yes (Hospitalization, Other)
  Sender: FDA-Public Use
  Company Number: US-GILEAD-2015-0165127

PATIENT
  Age: 56 Year
  Sex: Female

DRUGS (1)
  1. AMBRISENTAN [Suspect]
     Active Substance: AMBRISENTAN
     Indication: PULMONARY ARTERIAL HYPERTENSION
     Dosage: 10 MG, QD
     Route: 065
     Dates: start: 20150213

REACTIONS (7)
  - Respiratory failure [Unknown]
  - Pleural effusion [Unknown]
  - Ascites [Unknown]
  - Oedema [Unknown]
  - Cardiac failure [Unknown]
  - Haemorrhoidal haemorrhage [Unknown]
  - Productive cough [Unknown]
